FAERS Safety Report 10580352 (Version 2)
Quarter: 2014Q4

REPORT INFORMATION
  Report Type: Spontaneous
  Country: JP (occurrence: JP)
  Receive Date: 20141112
  Receipt Date: 20141219
  Transmission Date: 20150529
  Serious: Yes (Death, Other)
  Sender: FDA-Public Use
  Company Number: JP-ASTRAZENECA-2014SE85412

PATIENT
  Age: 32 Year
  Sex: Male

DRUGS (5)
  1. MEROPEN [Suspect]
     Active Substance: MEROPENEM
     Indication: MENINGITIS
     Route: 042
     Dates: start: 20141102, end: 20141202
  2. FUNGUARD [Concomitant]
     Active Substance: MICAFUNGIN SODIUM
     Dates: start: 20141102, end: 20141104
  3. MEROPEN [Suspect]
     Active Substance: MEROPENEM
     Indication: MENINGITIS
     Route: 042
     Dates: start: 20141103, end: 20141105
  4. VICCLOX [Concomitant]
     Active Substance: ACYCLOVIR SODIUM
     Dates: start: 20141102, end: 20141102
  5. VANCOMYCIN HYDROCHLORIDE. [Concomitant]
     Active Substance: VANCOMYCIN HYDROCHLORIDE
     Dates: start: 20141102, end: 20141105

REACTIONS (4)
  - Aspartate aminotransferase increased [Recovered/Resolved]
  - Death [Fatal]
  - Alanine aminotransferase increased [Recovered/Resolved]
  - Shock [Unknown]

NARRATIVE: CASE EVENT DATE: 20141104
